FAERS Safety Report 4479843-4 (Version None)
Quarter: 2004Q3

REPORT INFORMATION
  Report Type: 
  Country: None (occurrence: None)
  Receive Date: 20040923
  Receipt Date: 20040528
  Transmission Date: 20050211
  Serious: No
  Sender: FDA-Public Use
  Company Number: USA040464658

PATIENT
  Age: 48 Year
  Sex: Female
  Weight: 54 kg

DRUGS (1)
  1. FORTEO [Suspect]
     Indication: OSTEOPOROSIS
     Dosage: 20 UG DAY
     Dates: start: 20040322, end: 20040412

REACTIONS (4)
  - ALOPECIA [None]
  - EMOTIONAL DISTRESS [None]
  - SKIN BURNING SENSATION [None]
  - TOXIC SHOCK SYNDROME [None]
